FAERS Safety Report 17862717 (Version 1)
Quarter: 2020Q2

REPORT INFORMATION
  Report Type: Spontaneous
  Country: US (occurrence: US)
  Receive Date: 20200605
  Receipt Date: 20200605
  Transmission Date: 20200714
  Serious: Yes (Other)
  Sender: FDA-Public Use
  Company Number: US-LEADINGPHARMA-US-2020LEALIT00088

PATIENT
  Age: 23 Year
  Sex: Male

DRUGS (6)
  1. IMIPRAMINE HCL TABLETS USP [Suspect]
     Active Substance: IMIPRAMINE HYDROCHLORIDE
     Indication: PAIN
     Route: 061
  2. MEFENAMIC ACID. [Suspect]
     Active Substance: MEFENAMIC ACID
     Indication: PAIN
     Route: 061
  3. GABAPENTIN. [Suspect]
     Active Substance: GABAPENTIN
     Indication: PAIN
     Route: 061
  4. CLONIDINE. [Suspect]
     Active Substance: CLONIDINE
     Indication: PAIN
     Route: 061
  5. LIDOCAINE. [Suspect]
     Active Substance: LIDOCAINE
     Indication: PAIN
     Route: 061
  6. KETAMINE [Suspect]
     Active Substance: KETAMINE
     Indication: PAIN
     Route: 061

REACTIONS (4)
  - Hypertensive emergency [Unknown]
  - Subarachnoid haemorrhage [Unknown]
  - Product use in unapproved indication [Unknown]
  - Product preparation error [Unknown]
